FAERS Safety Report 15551897 (Version 1)
Quarter: 2018Q4

REPORT INFORMATION
  Report Type: Spontaneous
  Country: DE (occurrence: DE)
  Receive Date: 20181025
  Receipt Date: 20181025
  Transmission Date: 20190205
  Serious: Yes (Death)
  Sender: FDA-Public Use
  Company Number: DE-MYLANLABS-2018M1080032

PATIENT
  Age: 28 Year
  Sex: Female

DRUGS (4)
  1. DAUNORUBICIN HYDROCHLORIDE. [Suspect]
     Active Substance: DAUNORUBICIN HYDROCHLORIDE
     Indication: ACUTE LYMPHOCYTIC LEUKAEMIA
     Dosage: 180 MG/M2, CYCLE (180 MG/M2, CYCLIC (4-WEEK INDUCTION COURSE))
  2. L-ASPARAGINASE [Suspect]
     Active Substance: ASPARAGINASE
     Indication: ACUTE LYMPHOCYTIC LEUKAEMIA
     Dosage: UNK (70 000 UNITS/M2 (4-WEEK INDUCTION COURSE))
     Dates: start: 1990
  3. VINCRISTINE [Suspect]
     Active Substance: VINCRISTINE
     Indication: ACUTE LYMPHOCYTIC LEUKAEMIA
     Dosage: 6 MG, CYCLE (6 MG, CYCLIC (4-WEEK INDUCTION COURSE))
  4. PREDNISONE. [Suspect]
     Active Substance: PREDNISONE
     Indication: ACUTE LYMPHOCYTIC LEUKAEMIA
     Dosage: 1770 MG/M2, CYCLE (1770 MG/M2, CYCLIC (4-WEEK INDUCTION COURSE))
     Dates: start: 1990

REACTIONS (3)
  - Pulmonary haemorrhage [Fatal]
  - Pneumonia [Fatal]
  - Stenotrophomonas infection [Fatal]
